FAERS Safety Report 21588513 (Version 2)
Quarter: 2022Q4

REPORT INFORMATION
  Report Type: Spontaneous
  Country: US (occurrence: US)
  Receive Date: 20221114
  Receipt Date: 20221117
  Transmission Date: 20230112
  Serious: No
  Sender: FDA-Public Use
  Company Number: US-002147023-NVSC2022US255351

PATIENT
  Sex: Male

DRUGS (1)
  1. PROMACTA [Suspect]
     Active Substance: ELTROMBOPAG OLAMINE
     Indication: Chronic myelomonocytic leukaemia
     Dosage: 75 MG, QD (1 TABLET BY MOUTH ONCE A DAY FOR TWO WEEKS THEN 1 TABLET BY MOUTH TWICE A DAY))
     Route: 048
     Dates: start: 202210

REACTIONS (2)
  - Dyspnoea [Unknown]
  - Product use in unapproved indication [Unknown]
